FAERS Safety Report 7192687-8 (Version None)
Quarter: 2010Q4

REPORT INFORMATION
  Report Type: 
  Country: None (occurrence: None)
  Receive Date: 20101223
  Receipt Date: 20101109
  Transmission Date: 20110411
  Serious: No
  Sender: FDA-Public Use
  Company Number: US-BAYER-2010-003243

PATIENT
  Sex: Male
  Weight: 97 kg

DRUGS (6)
  1. ASPIRIN [Suspect]
  2. ALEVE-D SINUS + COLD [Suspect]
  3. SYNTHROID [Concomitant]
  4. TOPROL-XL [Concomitant]
  5. LIPITOR [Concomitant]
  6. EXTRA STRENGTH TYLENOL [Concomitant]

REACTIONS (1)
  - CONSTIPATION [None]
